FAERS Safety Report 5968605-4 (Version None)
Quarter: 2008Q4

REPORT INFORMATION
  Report Type: 
  Country: None (occurrence: None)
  Receive Date: 20081126
  Receipt Date: 20081120
  Transmission Date: 20090506
  Serious: Yes (Other)
  Sender: FDA-Public Use
  Company Number: ES-MERCK-0811USA01153

PATIENT
  Age: 31 Year
  Sex: Female

DRUGS (1)
  1. DECADRON [Suspect]
     Indication: CENTRAL PONTINE MYELINOLYSIS
     Route: 048

REACTIONS (3)
  - DRUG INEFFECTIVE [None]
  - DYSARTHRIA [None]
  - QUADRIPLEGIA [None]
